FAERS Safety Report 7595347-4 (Version None)
Quarter: 2011Q3

REPORT INFORMATION
  Report Type: 
  Country: None (occurrence: None)
  Receive Date: 20110707
  Receipt Date: 20110705
  Transmission Date: 20111222
  Serious: Yes (Other)
  Sender: FDA-Public Use
  Company Number: US-PFIZER INC-2011150389

PATIENT
  Sex: Female
  Weight: 63.5 kg

DRUGS (15)
  1. ACETYLSALICYLIC ACID [Concomitant]
     Indication: CARDIAC DISORDER
     Dosage: 81 MG, UNK
  2. VITAMIN D [Concomitant]
     Dosage: 1000 UG, 1X/DAY
  3. VITAMIN B-12 [Concomitant]
     Dosage: 15 UG, 1X/DAY
  4. LOVAZA [Concomitant]
     Dosage: 1 G, UNK
  5. CHONDROITIN [Concomitant]
     Dosage: 120 MG, UNK
  6. CENTRUM [Concomitant]
     Dosage: UNK, 1X/DAY
  7. LIPITOR [Suspect]
     Indication: BLOOD CHOLESTEROL INCREASED
     Dosage: 80 MG, 1X/DAY
     Route: 048
     Dates: start: 20050701, end: 20110702
  8. PREMARIN [Concomitant]
     Indication: HORMONE THERAPY
     Dosage: 0.45 MG, 1X/DAY
  9. GLUCOSAMINE [Concomitant]
     Dosage: 15 MG, UNK
  10. KLOR-CON [Concomitant]
     Dosage: UNK
  11. MAGNESIUM [Concomitant]
     Dosage: 250 MG, 1X/DAY
  12. BIOTIN [Concomitant]
     Dosage: 1000 UG, 1X/DAY
  13. MICARDIS HCT [Concomitant]
     Indication: HYPERTENSION
     Dosage: 80/25 MG, 1X/DAY
  14. DYNACIRC [Concomitant]
     Indication: HYPERTENSION
     Dosage: 10 MG, 2X/DAY
  15. FOSAMAX [Concomitant]
     Indication: OSTEOPOROSIS
     Dosage: 70 MG, WEEKLY

REACTIONS (4)
  - ASPARTATE AMINOTRANSFERASE INCREASED [None]
  - HEPATIC ENZYME INCREASED [None]
  - BLOOD CHOLESTEROL INCREASED [None]
  - BLOOD UREA INCREASED [None]
